FAERS Safety Report 4567961-1 (Version None)
Quarter: 2005Q1

REPORT INFORMATION
  Report Type: 
  Country: None (occurrence: None)
  Receive Date: 20050128
  Receipt Date: 20041115
  Transmission Date: 20050727
  Serious: Yes (Other)
  Sender: FDA-Public Use
  Company Number: 207832

PATIENT
  Age: 64 Year
  Sex: Female
  Weight: 81.6475 kg

DRUGS (9)
  1. AVONEX [Suspect]
     Indication: MULTIPLE SCLEROSIS
     Dosage: SEE IMAGE
     Route: 032
     Dates: start: 20000401, end: 20031101
  2. AVONEX [Suspect]
     Indication: MULTIPLE SCLEROSIS
     Dosage: SEE IMAGE
     Route: 032
     Dates: start: 20031101
  3. NEURONTIN [Concomitant]
  4. FLEXTRA [Concomitant]
  5. LORCET-HD [Concomitant]
  6. HYZAAR [Concomitant]
  7. PRAVACHOL [Concomitant]
  8. AMITRYPLIN [Concomitant]
  9. ANSAID [Concomitant]

REACTIONS (2)
  - BREAST CANCER [None]
  - HYPERTENSION [None]
